FAERS Safety Report 5096474-6 (Version None)
Quarter: 2006Q3

REPORT INFORMATION
  Report Type: 
  Country: None (occurrence: None)
  Receive Date: 20060905
  Receipt Date: 20060818
  Transmission Date: 20061208
  Serious: Yes (Other)
  Sender: FDA-Public Use
  Company Number: JP-SANOFI-SYNTHELABO-A01200606611

PATIENT
  Age: 79 Year
  Sex: Male
  Weight: 50 kg

DRUGS (2)
  1. LIVALO [Concomitant]
     Indication: HYPERCHOLESTEROLAEMIA
     Route: 065
     Dates: start: 20060701
  2. PLAVIX [Suspect]
     Indication: CEREBRAL INFARCTION
     Route: 048
     Dates: start: 20060708, end: 20060710

REACTIONS (1)
  - BLOOD CREATINE PHOSPHOKINASE INCREASED [None]
